FAERS Safety Report 8804501 (Version 1)
Quarter: 2012Q4

REPORT INFORMATION
  Report Type: 
  Country: US (occurrence: US)
  Receive Date: 20120923
  Receipt Date: 20120923
  Transmission Date: 20130627
  Serious: No
  Sender: FDA-Public Use
  Company Number: US-009507513-1209USA008014

PATIENT
  Age: 83 Year
  Sex: Female

DRUGS (1)
  1. ZIOPTAN [Suspect]
     Indication: GLAUCOMA
     Dosage: UNK
     Route: 047
     Dates: start: 20120916, end: 20120918

REACTIONS (2)
  - Eye burns [Not Recovered/Not Resolved]
  - Eye pain [Not Recovered/Not Resolved]
